FAERS Safety Report 18890249 (Version 2)
Quarter: 2021Q1

REPORT INFORMATION
  Report Type: Spontaneous
  Country: PT (occurrence: PT)
  Receive Date: 20210214
  Receipt Date: 20210218
  Transmission Date: 20210420
  Serious: Yes (Hospitalization, Disabling)
  Sender: FDA-Public Use
  Company Number: PT-SAMSUNG BIOEPIS-SB-2021-02784

PATIENT
  Age: 41 Year
  Sex: Female
  Weight: 76 kg

DRUGS (1)
  1. ADALIMUMAB [Suspect]
     Active Substance: ADALIMUMAB
     Indication: RHEUMATOID ARTHRITIS
     Dosage: TOOK 17?NOV?2020 AND REPEATED ON 08?JAN?2021
     Route: 058
     Dates: start: 2010, end: 20210109

REACTIONS (4)
  - Neck pain [Recovering/Resolving]
  - Motor dysfunction [Recovering/Resolving]
  - Myelitis [Recovering/Resolving]
  - Sensory disturbance [Recovering/Resolving]

NARRATIVE: CASE EVENT DATE: 20210103
